FAERS Safety Report 19225862 (Version 1)
Quarter: 2021Q2

REPORT INFORMATION
  Report Type: Spontaneous
  Country: US (occurrence: US)
  Receive Date: 20210505
  Receipt Date: 20210505
  Transmission Date: 20210717
  Serious: Yes (Hospitalization, Other)
  Sender: FDA-Public Use
  Company Number: US-ROCHE-2630993

PATIENT
  Age: 78 Year
  Sex: Female
  Weight: 51.3 kg

DRUGS (3)
  1. LASIX [Concomitant]
     Active Substance: FUROSEMIDE
     Indication: CARDIAC FAILURE
     Dosage: 20 MG PRN FOR } 3 LBS OF WEIGHT GAIN PER DAY ;ONGOING: YES
  2. AVASTIN [Suspect]
     Active Substance: BEVACIZUMAB
     Indication: COLON CANCER STAGE IV
     Dosage: ONGOING NO
     Route: 065
     Dates: start: 20200504
  3. LASIX [Concomitant]
     Active Substance: FUROSEMIDE
     Dosage: YES

REACTIONS (4)
  - Pneumonia [Unknown]
  - Intentional product use issue [Unknown]
  - Cardiac failure [Not Recovered/Not Resolved]
  - Off label use [Unknown]

NARRATIVE: CASE EVENT DATE: 20200518
